FAERS Safety Report 11054930 (Version 1)
Quarter: 2015Q2

REPORT INFORMATION
  Report Type: Spontaneous
  Country: US (occurrence: None)
  Receive Date: 20150421
  Receipt Date: 20150421
  Transmission Date: 20150821
  Serious: Yes (Life-Threatening, Disabling, Other)
  Sender: FDA-Public Use
  Company Number: None

PATIENT
  Age: 4 Year
  Sex: Male

DRUGS (2)
  1. POLYETHYLENE GLYCOL 3350NF 527G BRECKENRIDGE [Suspect]
     Active Substance: POLYETHYLENE GLYCOL 3350
     Indication: CONSTIPATION
     Route: 048
  2. PEDIASURE [Concomitant]
     Active Substance: VITAMINS

REACTIONS (2)
  - Dysphemia [None]
  - Renal cyst [None]

NARRATIVE: CASE EVENT DATE: 20150415
